FAERS Safety Report 7105338-5 (Version None)
Quarter: 2010Q4

REPORT INFORMATION
  Report Type: 
  Country: None (occurrence: None)
  Receive Date: 20101110
  Receipt Date: 20101026
  Transmission Date: 20110411
  Serious: Yes (Other)
  Sender: FDA-Public Use
  Company Number: JPI-P-002289

PATIENT
  Age: 26 Year
  Sex: Female
  Weight: 86.1834 kg

DRUGS (4)
  1. XYREM [Suspect]
     Indication: CATAPLEXY
     Dosage: SEE IMAGE, ORAL
     Route: 048
     Dates: start: 20071009, end: 20070101
  2. XYREM [Suspect]
     Indication: CATAPLEXY
     Dosage: SEE IMAGE, ORAL
     Route: 048
     Dates: start: 20100901, end: 20100101
  3. XYREM [Suspect]
     Indication: CATAPLEXY
     Dosage: SEE IMAGE, ORAL
     Route: 048
     Dates: start: 20101024
  4. IBUPROFEN [Concomitant]

REACTIONS (10)
  - AMNESIA [None]
  - APHASIA [None]
  - BALANCE DISORDER [None]
  - CONFUSIONAL STATE [None]
  - CRYING [None]
  - EMOTIONAL DISORDER [None]
  - FEELING ABNORMAL [None]
  - HALLUCINATION [None]
  - PARANOIA [None]
  - SOMNOLENCE [None]
